FAERS Safety Report 11134897 (Version 1)
Quarter: 2015Q2

REPORT INFORMATION
  Report Type: Spontaneous
  Country: DE (occurrence: DE)
  Receive Date: 20150525
  Receipt Date: 20150525
  Transmission Date: 20150821
  Serious: Yes (Other)
  Sender: FDA-Public Use
  Company Number: DE-HOSPIRA-2875180

PATIENT

DRUGS (3)
  1. CARBOPLATIN. [Suspect]
     Active Substance: CARBOPLATIN
     Indication: NEPHROBLASTOMA
     Dosage: OVER 3 DAYS
  2. MELPHALAN [Suspect]
     Active Substance: MELPHALAN
     Indication: NEPHROBLASTOMA
     Dosage: OVER 4 DAYS
  3. ETOPOSIDE. [Suspect]
     Active Substance: ETOPOSIDE
     Indication: NEPHROBLASTOMA
     Dosage: 40 MG/KG BW ON ONE DAY

REACTIONS (5)
  - Mitral valve incompetence [Unknown]
  - Renal impairment [Unknown]
  - Blood oestrogen increased [Unknown]
  - Mucosal inflammation [Unknown]
  - Hearing impaired [Unknown]
